FAERS Safety Report 4947869-X (Version None)
Quarter: 2006Q1

REPORT INFORMATION
  Report Type: 
  Country: None (occurrence: None)
  Receive Date: 20060313
  Receipt Date: 20060301
  Transmission Date: 20060701
  Serious: Yes (Other)
  Sender: FDA-Public Use
  Company Number: GXKR2006IT01041

PATIENT
  Age: 34 Year
  Sex: Female

DRUGS (1)
  1. AMOXICILLIN-CLAVULANIC ACID (NGX) (AMOXICILLIN, CLAVULANATE) 875/125MG [Suspect]
     Indication: DENTAL OPERATION
     Dosage: ORAL
     Route: 048

REACTIONS (1)
  - TYPE IV HYPERSENSITIVITY REACTION [None]
